FAERS Safety Report 15306233 (Version 2)
Quarter: 2018Q3

REPORT INFORMATION
  Report Type: Spontaneous
  Country: US (occurrence: US)
  Receive Date: 20180822
  Receipt Date: 20180823
  Transmission Date: 20181010
  Serious: No
  Sender: FDA-Public Use
  Company Number: US-PFIZER INC-2018334103

PATIENT
  Age: 67 Year
  Sex: Female
  Weight: 43.99 kg

DRUGS (2)
  1. BOSULIF [Suspect]
     Active Substance: BOSUTINIB MONOHYDRATE
     Dosage: 300 MG, 1X/DAY
     Route: 048
     Dates: start: 201805
  2. BOSULIF [Suspect]
     Active Substance: BOSUTINIB MONOHYDRATE
     Indication: CHRONIC MYELOID LEUKAEMIA
     Dosage: 400 MG, UNK
     Route: 048
     Dates: start: 201802

REACTIONS (4)
  - Speech disorder [Unknown]
  - Diarrhoea [Unknown]
  - Dysphonia [Unknown]
  - Nasopharyngitis [Recovering/Resolving]
